FAERS Safety Report 6595311-8 (Version None)
Quarter: 2010Q1

REPORT INFORMATION
  Report Type: 
  Country: None (occurrence: None)
  Receive Date: 20100219
  Receipt Date: 20100219
  Transmission Date: 20100710
  Serious: Yes (Hospitalization)
  Sender: FDA-Public Use
  Company Number: None

PATIENT
  Age: 69 Year
  Sex: Male

DRUGS (16)
  1. PREGABALIN [Suspect]
     Indication: PAIN
     Dosage: 50 MG THREE TIMES DAILY PO
     Route: 048
     Dates: start: 20090925, end: 20091003
  2. OXYCODONE HCL [Suspect]
     Indication: PAIN
     Dosage: 5 MG THREE TIMES DAILY PO
     Route: 048
     Dates: start: 20090925, end: 20091003
  3. BACLOFEN [Concomitant]
  4. ASPIRIN [Concomitant]
  5. ATENOLOL [Concomitant]
  6. BISACODYL [Concomitant]
  7. CIPROFLOXACIN [Concomitant]
  8. DOCUSATE [Concomitant]
  9. ENALAPRIL MALEATE [Concomitant]
  10. FAMOTIDINE [Concomitant]
  11. HEPARIN [Concomitant]
  12. HYDROCHLOROTHIAZIDE [Concomitant]
  13. MORPHINE [Concomitant]
  14. NITROGLYCERIN [Concomitant]
  15. SIMVASTATIN [Concomitant]
  16. ZOLPIDEM [Concomitant]

REACTIONS (3)
  - HYPOTENSION [None]
  - SYNCOPE [None]
  - UNRESPONSIVE TO STIMULI [None]
